FAERS Safety Report 13775961 (Version 1)
Quarter: 2017Q3

REPORT INFORMATION
  Report Type: Spontaneous
  Country: GB (occurrence: GB)
  Receive Date: 20170721
  Receipt Date: 20170721
  Transmission Date: 20171127
  Serious: Yes (Other)
  Sender: FDA-Public Use
  Company Number: GB-TEVA-787406ISR

PATIENT
  Sex: Female

DRUGS (1)
  1. ALENDRONIC ACID 70 MG TABLETS [Suspect]
     Active Substance: ALENDRONIC ACID
     Route: 065

REACTIONS (2)
  - Thyroid operation [Unknown]
  - Adverse reaction [Unknown]
